FAERS Safety Report 7574368-1 (Version None)
Quarter: 2011Q2

REPORT INFORMATION
  Report Type: 
  Country: None (occurrence: None)
  Receive Date: 20110627
  Receipt Date: 20110622
  Transmission Date: 20111010
  Serious: Yes (Death, Hospitalization, Other)
  Sender: FDA-Public Use
  Company Number: US-BRISTOL-MYERS SQUIBB COMPANY-15724669

PATIENT
  Age: 64 Year

DRUGS (1)
  1. IPILIMUMAB [Suspect]
     Indication: MALIGNANT MELANOMA

REACTIONS (4)
  - PNEUMONIA [None]
  - NEOPLASM MALIGNANT [None]
  - GASTROINTESTINAL PERFORATION [None]
  - COLITIS [None]
